FAERS Safety Report 9371135 (Version 6)
Quarter: 2013Q3

REPORT INFORMATION
  Report Type: Report from Study
  Country: FR (occurrence: FR)
  Receive Date: 20130627
  Receipt Date: 20130912
  Transmission Date: 20140515
  Serious: Yes (Hospitalization)
  Sender: FDA-Public Use
  Company Number: FR-ROCHE-1239307

PATIENT
  Age: 56 Year
  Sex: Male
  Weight: 57 kg

DRUGS (7)
  1. RITUXIMAB [Suspect]
     Indication: DIFFUSE LARGE B-CELL LYMPHOMA
     Dosage: LAST DOSE PRIOR TO SAE: 14/JUN/2013 (RESPIRATORY SYNDROME), CYCLE 1
     Route: 065
     Dates: start: 20130614
  2. RITUXIMAB [Suspect]
     Dosage: LAST DOSE PRIOR TO SAE: 02/JUL/2013
     Route: 065
  3. DOXORUBICIN [Concomitant]
     Indication: LYMPHOMA
  4. CYCLOPHOSPHAMIDE [Concomitant]
     Indication: LYMPHOMA
  5. VINDESINE [Concomitant]
     Indication: LYMPHOMA
  6. BLEOMYCIN HYDROCHLORIDE [Concomitant]
     Indication: LYMPHOMA
  7. PREDNISONE [Concomitant]
     Indication: LYMPHOMA

REACTIONS (4)
  - Acute respiratory distress syndrome [Recovered/Resolved]
  - Pericardial effusion [Recovered/Resolved]
  - Pleural effusion [Recovered/Resolved with Sequelae]
  - Tumour lysis syndrome [Recovered/Resolved]
